FAERS Safety Report 9672141 (Version 2)
Quarter: 2013Q4

REPORT INFORMATION
  Report Type: Report from Study
  Country: JP (occurrence: JP)
  Receive Date: 20131106
  Receipt Date: 20131201
  Transmission Date: 20140711
  Serious: Yes (Death)
  Sender: FDA-Public Use
  Company Number: JP-TAKEDA-2013TJP002484

PATIENT
  Age: 84 Year
  Sex: Male
  Weight: 58 kg

DRUGS (8)
  1. LANSOPRAZOLE [Suspect]
     Indication: PROPHYLAXIS AGAINST GASTROINTESTINAL ULCER
     Dosage: 15 MG, QD
     Route: 048
     Dates: start: 20120827, end: 20121126
  2. BAYASPIRIN [Concomitant]
     Indication: THROMBOSIS PROPHYLAXIS
     Dosage: 100 MG, 1 DAYS
     Route: 048
     Dates: start: 20110304
  3. DIGOXIN [Concomitant]
     Indication: ATRIAL FIBRILLATION
     Dosage: 0.125 MG, 1 DAYS
     Route: 048
  4. URINORM [Concomitant]
     Indication: HYPERURICAEMIA
     Dosage: 50 MG, 1 DAYS
     Route: 048
     Dates: start: 20120827
  5. ENALAPRIL [Concomitant]
     Indication: HYPERTENSION
     Dosage: 5 MG, 1 DAYS
     Route: 048
     Dates: start: 20120827
  6. JANUVIA [Concomitant]
     Dosage: 50 MG, 1 DAYS
     Route: 048
     Dates: start: 20120827
  7. WARFARIN [Concomitant]
     Dosage: 1 MG, 1 DAYS
     Route: 048
     Dates: start: 20120827
  8. SEIBULE [Concomitant]
     Dosage: 150 MG, 1 DAYS
     Route: 048
     Dates: start: 20120827

REACTIONS (1)
  - Pneumonia [Fatal]
